FAERS Safety Report 12704911 (Version 1)
Quarter: 2016Q3

REPORT INFORMATION
  Report Type: Spontaneous
  Country: US (occurrence: US)
  Receive Date: 20160831
  Receipt Date: 20160831
  Transmission Date: 20161109
  Serious: Yes (Other)
  Sender: FDA-Public Use
  Company Number: US-TEVA-689183USA

PATIENT
  Sex: Male
  Weight: 83.99 kg

DRUGS (1)
  1. POTASSIUM CHLORIDE. [Suspect]
     Active Substance: POTASSIUM CHLORIDE

REACTIONS (4)
  - Dysphagia [Unknown]
  - Retching [Unknown]
  - Choking [Unknown]
  - Product physical consistency issue [Unknown]
